FAERS Safety Report 13207611 (Version 1)
Quarter: 2017Q1

REPORT INFORMATION
  Report Type: Spontaneous
  Country: US (occurrence: US)
  Receive Date: 20170209
  Receipt Date: 20170209
  Transmission Date: 20170428
  Serious: No
  Sender: FDA-Public Use
  Company Number: US-SA-2017SA008966

PATIENT
  Age: 51 Year
  Sex: Male

DRUGS (9)
  1. LEVOTHYROXINE. [Concomitant]
     Active Substance: LEVOTHYROXINE
  2. LYRICA [Concomitant]
     Active Substance: PREGABALIN
  3. ALIROCUMAB PREFILLED SYRINGE [Concomitant]
     Indication: HYPERCHOLESTEROLAEMIA
     Dates: start: 201608
  4. VITAMIN D3 [Concomitant]
     Active Substance: CHOLECALCIFEROL
  5. PRALUENT [Suspect]
     Active Substance: ALIROCUMAB
     Indication: HYPERCHOLESTEROLAEMIA
     Route: 058
     Dates: start: 201608
  6. GLYXAMBI [Concomitant]
     Active Substance: EMPAGLIFLOZIN\LINAGLIPTIN
  7. CALCIUM CARBONATE. [Concomitant]
     Active Substance: CALCIUM CARBONATE
  8. TERBINAFINE. [Concomitant]
     Active Substance: TERBINAFINE
  9. TRULICITY [Concomitant]
     Active Substance: DULAGLUTIDE

REACTIONS (2)
  - Product use issue [Unknown]
  - Pain [Unknown]
